FAERS Safety Report 22101910 (Version 2)
Quarter: 2023Q2

REPORT INFORMATION
  Report Type: Report from Study
  Country: JP (occurrence: JP)
  Receive Date: 20230316
  Receipt Date: 20230501
  Transmission Date: 20230722
  Serious: Yes (Death)
  Sender: FDA-Public Use
  Company Number: JP-SERVIER-S23002216

PATIENT
  Age: 71 Year
  Sex: Male
  Weight: 64.1 kg

DRUGS (14)
  1. ONIVYDE [Suspect]
     Active Substance: IRINOTECAN HYDROCHLORIDE
     Indication: Pancreatic carcinoma
     Dosage: 50 MG/M2
     Route: 042
     Dates: start: 20221013, end: 20221013
  2. ONIVYDE [Suspect]
     Active Substance: IRINOTECAN HYDROCHLORIDE
     Dosage: 50 MG/M2
     Route: 042
     Dates: start: 20221027, end: 20221027
  3. ONIVYDE [Suspect]
     Active Substance: IRINOTECAN HYDROCHLORIDE
     Dosage: 50 MG/M2
     Route: 042
     Dates: start: 20221110, end: 20221110
  4. ONIVYDE [Suspect]
     Active Substance: IRINOTECAN HYDROCHLORIDE
     Dosage: 50 MG/M2
     Route: 042
     Dates: start: 20221201, end: 20221201
  5. LEVOLEUCOVORIN CALCIUM [Concomitant]
     Active Substance: LEVOLEUCOVORIN CALCIUM
     Indication: Pancreatic carcinoma
     Dosage: 200 MG/M2
     Route: 042
     Dates: start: 20221013, end: 20221013
  6. LEVOLEUCOVORIN CALCIUM [Concomitant]
     Active Substance: LEVOLEUCOVORIN CALCIUM
     Dosage: 200 MG/M2
     Route: 042
     Dates: start: 20221027, end: 20221027
  7. LEVOLEUCOVORIN CALCIUM [Concomitant]
     Active Substance: LEVOLEUCOVORIN CALCIUM
     Dosage: 200 MG/M2
     Route: 042
     Dates: start: 20221110, end: 20221110
  8. LEVOLEUCOVORIN CALCIUM [Concomitant]
     Active Substance: LEVOLEUCOVORIN CALCIUM
     Dosage: 200 MG/M2
     Route: 042
     Dates: start: 20221201, end: 20221201
  9. FLUOROURACIL [Concomitant]
     Active Substance: FLUOROURACIL
     Indication: Pancreatic carcinoma
     Dosage: 1800 MG/M2
     Route: 042
     Dates: start: 20221013, end: 20221015
  10. FLUOROURACIL [Concomitant]
     Active Substance: FLUOROURACIL
     Dosage: 1800 MG/M2
     Route: 042
     Dates: start: 20221027, end: 20221029
  11. FLUOROURACIL [Concomitant]
     Active Substance: FLUOROURACIL
     Dosage: 1800 MG/M2
     Route: 042
     Dates: start: 20221110, end: 20221112
  12. FLUOROURACIL [Concomitant]
     Active Substance: FLUOROURACIL
     Dosage: 1800 MG/M2
     Route: 042
     Dates: start: 20221201, end: 20221203
  13. PALONOSETRON HYDROCHLORIDE [Concomitant]
     Active Substance: PALONOSETRON HYDROCHLORIDE
     Indication: Chemotherapy side effect prophylaxis
     Dosage: UNKNOWN
     Route: 065
  14. DEXAMETHASONE [Concomitant]
     Active Substance: DEXAMETHASONE
     Indication: Chemotherapy side effect prophylaxis
     Dosage: UNKNOWN
     Route: 065

REACTIONS (2)
  - Malignant neoplasm progression [Fatal]
  - Neutrophil count decreased [Recovered/Resolved]

NARRATIVE: CASE EVENT DATE: 20221124
